FAERS Safety Report 7451017-4 (Version None)
Quarter: 2011Q2

REPORT INFORMATION
  Report Type: 
  Country: None (occurrence: None)
  Receive Date: 20110502
  Receipt Date: 20110425
  Transmission Date: 20111010
  Serious: Yes (Hospitalization)
  Sender: FDA-Public Use
  Company Number: CO-ROCHE-773200

PATIENT
  Sex: Female

DRUGS (1)
  1. HERCEPTIN [Suspect]
     Indication: BREAST CANCER
     Dosage: FREQUENCY MENTIONED AS Q 7 DAYS
     Route: 042
     Dates: start: 20090830, end: 20110323

REACTIONS (2)
  - SYNCOPE [None]
  - QUADRIPLEGIA [None]
